FAERS Safety Report 7637449-X (Version None)
Quarter: 2011Q3

REPORT INFORMATION
  Report Type: 
  Country: None (occurrence: None)
  Receive Date: 20110726
  Receipt Date: 20110718
  Transmission Date: 20111222
  Serious: Yes (Hospitalization)
  Sender: FDA-Public Use
  Company Number: PHHY2011CA33018

PATIENT
  Sex: Female

DRUGS (1)
  1. ZOMETA [Suspect]
     Indication: BREAST CANCER
     Dosage: 4 MG, EVERY 4 WEEKS
     Route: 042
     Dates: start: 20110320

REACTIONS (6)
  - VOMITING [None]
  - PNEUMONIA [None]
  - PAIN [None]
  - DIZZINESS [None]
  - FATIGUE [None]
  - NAUSEA [None]
